FAERS Safety Report 19717650 (Version 5)
Quarter: 2021Q4

REPORT INFORMATION
  Report Type: Other
  Country: US (occurrence: US)
  Receive Date: 20210818
  Receipt Date: 20211008
  Transmission Date: 20220303
  Serious: Yes (Hospitalization)
  Sender: FDA-Public Use
  Company Number: US-ROCHE-2888743

PATIENT
  Age: 66 Year
  Sex: Female

DRUGS (20)
  1. OCRELIZUMAB [Suspect]
     Active Substance: OCRELIZUMAB
     Indication: Multiple sclerosis
     Route: 042
     Dates: start: 20200115
  2. OCRELIZUMAB [Suspect]
     Active Substance: OCRELIZUMAB
     Route: 042
     Dates: start: 20200129
  3. OCRELIZUMAB [Suspect]
     Active Substance: OCRELIZUMAB
     Route: 042
     Dates: start: 20200729
  4. GLIMEPIRIDE [Concomitant]
     Active Substance: GLIMEPIRIDE
     Dates: start: 20160317
  5. METFORMIN [Concomitant]
     Active Substance: METFORMIN HYDROCHLORIDE
     Dates: start: 20090414
  6. LOSARTAN [Concomitant]
     Active Substance: LOSARTAN
     Dates: start: 20110320
  7. INSULIN LISPRO [Concomitant]
     Active Substance: INSULIN LISPRO
     Dates: start: 20200117
  8. INSULIN DETEMIR [Concomitant]
     Active Substance: INSULIN DETEMIR
     Dates: start: 20191220
  9. GABAPENTIN [Concomitant]
     Active Substance: GABAPENTIN
     Dates: start: 20190725
  10. DULOXETINE [Concomitant]
     Active Substance: DULOXETINE
     Dates: start: 20200320
  11. CLONAZEPAM [Concomitant]
     Active Substance: CLONAZEPAM
     Dates: start: 20140114
  12. BACLOFEN [Concomitant]
     Active Substance: BACLOFEN
     Dates: start: 20171003
  13. ALENDRONATE [Concomitant]
     Active Substance: ALENDRONATE SODIUM
     Dates: start: 20161018
  14. SUMATRIPTAN [Concomitant]
     Active Substance: SUMATRIPTAN
     Dates: start: 20131112
  15. SIMVASTATIN [Concomitant]
     Active Substance: SIMVASTATIN
     Dates: start: 20111122
  16. CLOBETASOL [Concomitant]
     Active Substance: CLOBETASOL
     Dates: start: 20200109
  17. ROPINIROLE [Concomitant]
     Active Substance: ROPINIROLE
     Dates: start: 20200526
  18. METHENAMINE [Concomitant]
     Active Substance: METHENAMINE
     Dates: start: 20200527
  19. ESTRADIOL [Concomitant]
     Active Substance: ESTRADIOL
     Dates: start: 20180501
  20. NICOTINE [Concomitant]
     Active Substance: NICOTINE
     Dates: start: 20150928

REACTIONS (2)
  - Toxic encephalopathy [Recovered/Resolved]
  - Encephalopathy [Recovered/Resolved]

NARRATIVE: CASE EVENT DATE: 20210611
